FAERS Safety Report 7722452-1 (Version None)
Quarter: 2011Q3

REPORT INFORMATION
  Report Type: 
  Country: None (occurrence: None)
  Receive Date: 20110831
  Receipt Date: 20110823
  Transmission Date: 20111222
  Serious: Yes (Other)
  Sender: FDA-Public Use
  Company Number: JP-BAYER-2011-070213

PATIENT
  Age: 41 Year
  Sex: Female
  Weight: 70 kg

DRUGS (12)
  1. DIOVAN [Concomitant]
     Dosage: DAILY DOSE 80 MG
     Route: 048
     Dates: start: 20101215
  2. ADALAT [Suspect]
     Indication: HYPERTENSION
     Dosage: 20 MG, QD
     Route: 048
     Dates: start: 20101224, end: 20110715
  3. ALDACTONE [Suspect]
     Route: 048
  4. GLYBURIDE [Concomitant]
     Dosage: UNK
     Route: 048
  5. PLAVIX [Suspect]
     Dosage: DAILY DOSE 75 MG
     Route: 048
     Dates: start: 20101215, end: 20110715
  6. SITAGLIPTIN PHOSPHATE [Concomitant]
     Dosage: UNK
     Route: 048
  7. GLYBURIDE [Concomitant]
     Dosage: DAILY DOSE 2.5 MG
     Route: 048
     Dates: start: 20110517
  8. SITAGLIPTIN PHOSPHATE [Concomitant]
     Dosage: DAILY DOSE 50 MG
     Route: 048
     Dates: start: 20110208
  9. LASIX [Concomitant]
     Route: 065
  10. AMARYL [Concomitant]
     Dosage: DAILY DOSE 1 MG
     Route: 048
     Dates: start: 20101215, end: 20110425
  11. PRAVASTATIN SODIUM [Concomitant]
     Dosage: DAILY DOSE 10 MG
     Route: 048
     Dates: start: 20101215, end: 20110425
  12. LIPIDIL [Concomitant]
     Indication: HYPERLIPIDAEMIA
     Dosage: DAILY DOSE 100 MG
     Route: 048
     Dates: start: 20110517

REACTIONS (1)
  - GLYCOSYLATED HAEMOGLOBIN INCREASED [None]
